FAERS Safety Report 7727485-7 (Version None)
Quarter: 2011Q3

REPORT INFORMATION
  Report Type: 
  Country: None (occurrence: None)
  Receive Date: 20110902
  Receipt Date: 20110831
  Transmission Date: 20111222
  Serious: No
  Sender: FDA-Public Use
  Company Number: US-PFIZER INC-2011204569

PATIENT
  Sex: Male
  Weight: 73 kg

DRUGS (1)
  1. LIPITOR [Suspect]
     Indication: BLOOD CHOLESTEROL INCREASED
     Dosage: 40 MG, DAILY
     Route: 048

REACTIONS (3)
  - LOW DENSITY LIPOPROTEIN ABNORMAL [None]
  - BLOOD TRIGLYCERIDES ABNORMAL [None]
  - HIGH DENSITY LIPOPROTEIN ABNORMAL [None]
